FAERS Safety Report 22339423 (Version 1)
Quarter: 2023Q2

REPORT INFORMATION
  Report Type: Report from Study
  Country: NL (occurrence: NL)
  Receive Date: 20230518
  Receipt Date: 20230518
  Transmission Date: 20230721
  Serious: Yes (Death, Hospitalization, Other)
  Sender: FDA-Public Use
  Company Number: NL-ABBVIE-4717099

PATIENT
  Sex: Male
  Weight: 85 kg

DRUGS (5)
  1. CARBIDOPA\LEVODOPA [Suspect]
     Active Substance: CARBIDOPA\LEVODOPA
     Indication: Parkinson^s disease
     Dosage: REMAINS AT 16 HOURS
     Route: 050
     Dates: start: 20160527
  2. CARBIDOPA\LEVODOPA [Suspect]
     Active Substance: CARBIDOPA\LEVODOPA
     Dosage: MD: 4.5 ML, CD: 3.4 ML/H, ED: 2.0 ML
     Route: 050
  3. LEVODOPA [Concomitant]
     Active Substance: LEVODOPA
     Indication: Parkinson^s disease
  4. LACTULOSE [Concomitant]
     Active Substance: LACTULOSE
     Indication: Abnormal faeces
  5. LEVODOPA/CARBIDOPA PCH RETARD [Concomitant]
     Indication: Parkinson^s disease

REACTIONS (5)
  - Cardiac arrest [Fatal]
  - Device kink [Not Recovered/Not Resolved]
  - Device issue [Not Recovered/Not Resolved]
  - Pneumonitis [Recovering/Resolving]
  - Fall [Not Recovered/Not Resolved]

NARRATIVE: CASE EVENT DATE: 20230512
